FAERS Safety Report 8428102-3 (Version None)
Quarter: 2012Q2

REPORT INFORMATION
  Report Type: 
  Country: None (occurrence: None)
  Receive Date: 20120611
  Receipt Date: 20120420
  Transmission Date: 20120825
  Serious: No
  Sender: FDA-Public Use
  Company Number: US-ASTRAZENECA-2012SE26410

PATIENT
  Age: 47 Year
  Sex: Female

DRUGS (14)
  1. LOTREL [Concomitant]
  2. NORFLEX [Concomitant]
  3. ZANTAC [Concomitant]
  4. CYMBALTA [Concomitant]
  5. NEXIUM [Suspect]
     Route: 048
  6. FISH OIL [Concomitant]
  7. VICADEN [Concomitant]
  8. LEVOTHYROXINE SODIUM [Concomitant]
  9. TESSALON [Concomitant]
  10. CLARITIN [Concomitant]
  11. GLIPIZIDE [Concomitant]
  12. HYDROCHLOROTHIAZIDE [Concomitant]
  13. METFORMIN HCL [Concomitant]
  14. RHINOCORT [Suspect]
     Route: 045

REACTIONS (2)
  - TYPE 2 DIABETES MELLITUS [None]
  - FIBROMYALGIA [None]
